FAERS Safety Report 11305377 (Version 1)
Quarter: 2015Q3

REPORT INFORMATION
  Report Type: Spontaneous
  Country: US (occurrence: US)
  Receive Date: 20150723
  Receipt Date: 20150723
  Transmission Date: 20151125
  Serious: No
  Sender: FDA-Public Use
  Company Number: US-JNJFOC-20141109938

PATIENT
  Age: 70 Year
  Sex: Female
  Weight: 52.16 kg

DRUGS (4)
  1. AZELASTINE [Concomitant]
     Active Substance: AZELASTINE
     Indication: RHINORRHOEA
     Dosage: 2 SQUIRTS/2 DAILY BI
     Route: 065
  2. ADVAIR HFA [Concomitant]
     Active Substance: FLUTICASONE PROPIONATE\SALMETEROL XINAFOATE
     Indication: EMPHYSEMA
     Dosage: 2 PUFFS/ 2 DAILY
     Route: 065
  3. ZYRTEC [Suspect]
     Active Substance: CETIRIZINE HYDROCHLORIDE
     Route: 048
  4. ZYRTEC [Suspect]
     Active Substance: CETIRIZINE HYDROCHLORIDE
     Indication: MULTIPLE ALLERGIES
     Route: 048
     Dates: start: 20141110

REACTIONS (2)
  - Drug ineffective [Unknown]
  - Dyspnoea [Unknown]
